FAERS Safety Report 6041944-7 (Version None)
Quarter: 2009Q1

REPORT INFORMATION
  Report Type: 
  Country: None (occurrence: None)
  Receive Date: 20090116
  Receipt Date: 20090112
  Transmission Date: 20090719
  Serious: Yes (Other)
  Sender: FDA-Public Use
  Company Number: FR-ROCHE-608016

PATIENT
  Sex: Male

DRUGS (3)
  1. RIVOTRIL [Suspect]
     Indication: PHANTOM PAIN
     Route: 065
  2. RIVOTRIL [Suspect]
     Route: 065
  3. LYRICA [Concomitant]

REACTIONS (1)
  - HYPERGLYCAEMIA [None]
